FAERS Safety Report 5869355-5 (Version None)
Quarter: 2008Q3

REPORT INFORMATION
  Report Type: 
  Country: None (occurrence: None)
  Receive Date: 20080828
  Receipt Date: 20080812
  Transmission Date: 20090109
  Serious: Yes (Life-Threatening, Hospitalization)
  Sender: FDA-Public Use
  Company Number: DSA_32290_2008

PATIENT
  Sex: Female

DRUGS (2)
  1. LORAZEPAM [Suspect]
     Dosage: 15 MG 1X ORAL
     Route: 048
     Dates: start: 20071229, end: 20071229
  2. ALCOHOL (ALCOHOL - ETHANOL) [Suspect]
     Dates: start: 20071229, end: 20071229

REACTIONS (9)
  - ABNORMAL BEHAVIOUR [None]
  - BLOOD CREATININE DECREASED [None]
  - BLOOD POTASSIUM DECREASED [None]
  - CARDIAC MURMUR [None]
  - INTENTIONAL OVERDOSE [None]
  - MIOSIS [None]
  - SOMNOLENCE [None]
  - SUICIDAL IDEATION [None]
  - SUICIDE ATTEMPT [None]
